FAERS Safety Report 9484478 (Version 1)
Quarter: 2013Q3

REPORT INFORMATION
  Report Type: Spontaneous
  Country: US (occurrence: US)
  Receive Date: 20130828
  Receipt Date: 20130828
  Transmission Date: 20140515
  Serious: Yes (Other)
  Sender: FDA-Public Use
  Company Number: US-AMGEN-KDL423134

PATIENT
  Age: 49 Year
  Sex: Male

DRUGS (7)
  1. ENBREL [Suspect]
     Indication: PRODUCT USED FOR UNKNOWN INDICATION
     Dosage: 50 MG, QWK
     Route: 058
  2. METHOTREXATE [Concomitant]
     Dosage: 2.5 MG, UNK
  3. NAPROXEN SODIUM [Concomitant]
  4. FOLIC ACID [Concomitant]
     Dosage: 1 MG, UNK
  5. ASCORBIC ACID [Concomitant]
     Dosage: 500 MG, UNK
  6. ERGOCALCIFEROL [Concomitant]
     Dosage: 400 IU, UNK
  7. MULTIVITAMINS [Concomitant]
     Dosage: UNK UNK, UNK

REACTIONS (1)
  - Atypical pneumonia [Unknown]
